FAERS Safety Report 15501790 (Version 1)
Quarter: 2018Q4

REPORT INFORMATION
  Report Type: Spontaneous
  Country: US (occurrence: US)
  Receive Date: 20181015
  Receipt Date: 20181015
  Transmission Date: 20190205
  Serious: No
  Sender: FDA-Public Use
  Company Number: US-AMGEN-USASP2018123369

PATIENT

DRUGS (1)
  1. ARANESP [Suspect]
     Active Substance: DARBEPOETIN ALFA
     Indication: RENAL DISORDER
     Dosage: 25 MUG, UNK
     Route: 065

REACTIONS (2)
  - Off label use [Unknown]
  - Wrong technique in product usage process [Unknown]
